FAERS Safety Report 10763974 (Version 3)
Quarter: 2015Q1

REPORT INFORMATION
  Report Type: Spontaneous
  Country: DE (occurrence: DE)
  Receive Date: 20150204
  Receipt Date: 20150212
  Transmission Date: 20150721
  Serious: Yes (Hospitalization, Other)
  Sender: FDA-Public Use
  Company Number: GXKR2015DE000841

PATIENT
  Age: 41 Year
  Sex: Male
  Weight: 85 kg

DRUGS (1)
  1. ALLOPURINOL. [Suspect]
     Active Substance: ALLOPURINOL
     Indication: HYPERURICAEMIA
     Dosage: 300 MG, QHS
     Route: 048

REACTIONS (12)
  - Renal failure [Unknown]
  - Tonsillitis [Unknown]
  - Exfoliative rash [Unknown]
  - Skin haemorrhage [Unknown]
  - Eosinophilia [Unknown]
  - Blister [Unknown]
  - Multi-organ failure [Recovered/Resolved with Sequelae]
  - Encephalopathy [Unknown]
  - Pyrexia [Unknown]
  - Hepatic failure [Recovered/Resolved with Sequelae]
  - Incorrect dose administered [Recovered/Resolved]
  - Drug reaction with eosinophilia and systemic symptoms [Recovered/Resolved with Sequelae]
